FAERS Safety Report 7790527-7 (Version None)
Quarter: 2011Q3

REPORT INFORMATION
  Report Type: 
  Country: None (occurrence: None)
  Receive Date: 20110930
  Receipt Date: 20110919
  Transmission Date: 20111222
  Serious: Yes (Other)
  Sender: FDA-Public Use
  Company Number: PHHY2011KE83558

PATIENT
  Age: 36 Year
  Sex: Female

DRUGS (5)
  1. TACROLIMUS [Concomitant]
     Indication: IMMUNOSUPPRESSION
     Dosage: UNK UKN, UNK
  2. CYCLOSPORINE [Suspect]
     Indication: LIVER TRANSPLANT
     Dosage: UNK UKN, UNK
  3. LEVOTHYROXINE [Concomitant]
     Indication: LIVER TRANSPLANT
     Dosage: UNK UKN, UNK
  4. PREDNISOLONE [Concomitant]
     Indication: LIVER TRANSPLANT
     Dosage: UNK UKN, UNK
  5. PROPYLTHIOURACIL [Concomitant]
     Dosage: 100 MG, TID

REACTIONS (3)
  - HYPOXIA [None]
  - MATERNAL EXPOSURE DURING PREGNANCY [None]
  - OLIGOHYDRAMNIOS [None]
